FAERS Safety Report 7573006-1 (Version None)
Quarter: 2011Q2

REPORT INFORMATION
  Report Type: 
  Country: None (occurrence: None)
  Receive Date: 20110627
  Receipt Date: 20110617
  Transmission Date: 20111010
  Serious: Yes (Death, Other)
  Sender: FDA-Public Use
  Company Number: US-CELGENEUS-163-21880-11062733

PATIENT
  Sex: Female

DRUGS (9)
  1. IMDUR [Concomitant]
     Route: 065
  2. FUROSEMIDE [Concomitant]
     Route: 065
  3. GABAPENTIN [Concomitant]
     Route: 065
  4. ACYCLOVIR [Concomitant]
     Route: 065
  5. REVLIMID [Suspect]
     Dosage: 10 MILLIGRAM
     Route: 048
     Dates: start: 20110518, end: 20110101
  6. FAMOTIDINE [Concomitant]
     Route: 065
  7. LISINOPRIL [Concomitant]
     Route: 065
  8. COREG [Concomitant]
     Route: 065
  9. SYNTHROID [Concomitant]
     Route: 065

REACTIONS (2)
  - ASTHENIA [None]
  - DEATH [None]
